FAERS Safety Report 5913582-5 (Version None)
Quarter: 2008Q4

REPORT INFORMATION
  Report Type: 
  Country: None (occurrence: None)
  Receive Date: 20081006
  Receipt Date: 20080922
  Transmission Date: 20090506
  Serious: Yes (Hospitalization)
  Sender: FDA-Public Use
  Company Number: 237029J08USA

PATIENT
  Age: 39 Year
  Sex: Female

DRUGS (6)
  1. REBIF [Suspect]
     Indication: MULTIPLE SCLEROSIS
     Dosage: 44 MCG, 3 IN 1 WEEKS, SUBCUTANEOUS
     Route: 058
     Dates: start: 20051223
  2. UNSPECIFIED ANTIDEPRESSANT (ANTIDEPRESSANTS) [Concomitant]
  3. LEXAPRO [Concomitant]
  4. SEROQUEL [Concomitant]
  5. VALIUM [Concomitant]
  6. TOPAMAX [Concomitant]

REACTIONS (3)
  - CHOLELITHIASIS [None]
  - PAIN [None]
  - STRESS [None]
